FAERS Safety Report 10312791 (Version 2)
Quarter: 2014Q3

REPORT INFORMATION
  Report Type: Spontaneous
  Country: US (occurrence: US)
  Receive Date: 20140718
  Receipt Date: 20140828
  Transmission Date: 20150326
  Serious: Yes (Other)
  Sender: FDA-Public Use
  Company Number: US-AMGEN INC.-USASP2014053457

PATIENT
  Age: 45 Year
  Sex: Female
  Weight: 78.91 kg

DRUGS (2)
  1. ENBREL [Suspect]
     Active Substance: ETANERCEPT
     Indication: PSORIASIS
     Dosage: 50 MG, 2 TIMES/WK
     Route: 065
     Dates: start: 20140627, end: 20140706
  2. STELARA [Suspect]
     Active Substance: USTEKINUMAB
     Indication: PRODUCT USED FOR UNKNOWN INDICATION
     Dosage: 45 MG, QMO
     Route: 058
     Dates: start: 20140808

REACTIONS (13)
  - Swelling [Recovering/Resolving]
  - Arthropathy [Recovering/Resolving]
  - Pain [Recovering/Resolving]
  - Dysstasia [Recovering/Resolving]
  - Eye pain [Recovering/Resolving]
  - Abdominal discomfort [Recovering/Resolving]
  - Injection site erythema [Recovering/Resolving]
  - Injection site swelling [Recovering/Resolving]
  - Malaise [Recovering/Resolving]
  - Injection site discolouration [Recovering/Resolving]
  - Cough [Recovering/Resolving]
  - Headache [Recovering/Resolving]
  - Injection site urticaria [Recovering/Resolving]

NARRATIVE: CASE EVENT DATE: 201407
